FAERS Safety Report 20196158 (Version 1)
Quarter: 2021Q4

REPORT INFORMATION
  Report Type: Spontaneous
  Country: TW (occurrence: TW)
  Receive Date: 20211216
  Receipt Date: 20211216
  Transmission Date: 20220303
  Serious: Yes (Other)
  Sender: FDA-Public Use
  Company Number: TW-NOVARTISPH-NVSC2021TW283015

PATIENT
  Sex: Female

DRUGS (13)
  1. CYCLOSPORINE [Suspect]
     Active Substance: CYCLOSPORINE
     Indication: Product used for unknown indication
     Dosage: UNK
     Route: 065
  2. IMATINIB [Suspect]
     Active Substance: IMATINIB
     Indication: Product used for unknown indication
     Dosage: UNK
     Route: 065
  3. MYCOPHENOLATE MOFETIL [Suspect]
     Active Substance: MYCOPHENOLATE MOFETIL
     Indication: Product used for unknown indication
     Dosage: UNK
     Route: 065
  4. LAPINE T-LYMPHOCYTE IMMUNE GLOBULIN [Concomitant]
     Active Substance: LAPINE T-LYMPHOCYTE IMMUNE GLOBULIN
     Indication: Product used for unknown indication
     Dosage: UNK
     Route: 065
  5. METHYLPREDNISOLONE [Concomitant]
     Active Substance: METHYLPREDNISOLONE
     Indication: Product used for unknown indication
     Dosage: UNK
     Route: 065
  6. PREDNISONE [Concomitant]
     Active Substance: PREDNISONE
     Indication: Product used for unknown indication
     Dosage: UNK
     Route: 065
  7. TACROLIMUS [Concomitant]
     Active Substance: TACROLIMUS
     Indication: Product used for unknown indication
     Dosage: UNK
     Route: 065
  8. VIDAZA [Concomitant]
     Active Substance: AZACITIDINE
     Indication: Product used for unknown indication
     Dosage: UNK
     Route: 065
     Dates: start: 20200421
  9. VIDAZA [Concomitant]
     Active Substance: AZACITIDINE
     Dosage: UNK
     Route: 065
     Dates: start: 20200519
  10. VIDAZA [Concomitant]
     Active Substance: AZACITIDINE
     Dosage: UNK
     Route: 065
     Dates: start: 20200616
  11. VIDAZA [Concomitant]
     Active Substance: AZACITIDINE
     Dosage: UNK
     Route: 065
     Dates: start: 20200714
  12. VIDAZA [Concomitant]
     Active Substance: AZACITIDINE
     Dosage: UNK
     Route: 065
     Dates: start: 20200811
  13. VENETOCLAX [Concomitant]
     Active Substance: VENETOCLAX
     Indication: Product used for unknown indication
     Dosage: UNK
     Route: 065
     Dates: start: 20200924, end: 20200930

REACTIONS (14)
  - Acute graft versus host disease [Unknown]
  - Chronic graft versus host disease in liver [Unknown]
  - Chronic graft versus host disease in skin [Unknown]
  - Chronic graft versus host disease oral [Unknown]
  - Chronic graft versus host disease in eye [Unknown]
  - Stomatitis [Unknown]
  - Dry mouth [Unknown]
  - Salivary gland mucocoele [Unknown]
  - Skin hyperpigmentation [Unknown]
  - Pruritus [Unknown]
  - Skin exfoliation [Unknown]
  - Ocular hyperaemia [Unknown]
  - AST/ALT ratio abnormal [Unknown]
  - Eye pain [Unknown]
